FAERS Safety Report 6210846-5 (Version None)
Quarter: 2009Q2

REPORT INFORMATION
  Report Type: 
  Country: None (occurrence: None)
  Receive Date: 20090601
  Receipt Date: 20090528
  Transmission Date: 20091009
  Serious: Yes (Death)
  Sender: FDA-Public Use
  Company Number: PHHY2009FR19195

PATIENT
  Sex: Female

DRUGS (2)
  1. ZOMETA [Suspect]
  2. INNOHEP [Concomitant]
     Indication: HYPERCOAGULATION
     Dosage: UNK

REACTIONS (2)
  - DEEP VEIN THROMBOSIS [None]
  - PULMONARY EMBOLISM [None]
